FAERS Safety Report 8902569 (Version 2)
Quarter: 2013Q1

REPORT INFORMATION
  Report Type: Spontaneous
  Country: US (occurrence: US)
  Receive Date: 20121112
  Receipt Date: 20130114
  Transmission Date: 20140127
  Serious: No
  Sender: FDA-Public Use
  Company Number: US-009507513-1211USA002128

PATIENT
  Sex: Female
  Weight: 51.25 kg

DRUGS (1)
  1. IMPLANON [Suspect]
     Indication: CONTRACEPTION
     Dosage: 1 ROD UP TO 3 YEARS
     Route: 059
     Dates: start: 20110912

REACTIONS (3)
  - Menorrhagia [Unknown]
  - Acne [Unknown]
  - Implant site pain [Unknown]
